FAERS Safety Report 24144513 (Version 1)
Quarter: 2024Q3

REPORT INFORMATION
  Report Type: Report from Study
  Country: CA (occurrence: CA)
  Receive Date: 20240728
  Receipt Date: 20240728
  Transmission Date: 20241016
  Serious: Yes (Other)
  Sender: SAMSUNG BIOEPIS
  Company Number: CA-SAMSUNG BIOEPIS-SB-2024-22301

PATIENT
  Age: 46 Year
  Sex: Male
  Weight: 134 kg

DRUGS (1)
  1. RENFLEXIS [Suspect]
     Active Substance: INFLIXIMAB-ABDA
     Indication: Psoriasis
     Dosage: 5MG/KG
     Route: 042
     Dates: start: 20240405

REACTIONS (2)
  - Pustule [Not Recovered/Not Resolved]
  - Anal abscess [Not Recovered/Not Resolved]
